FAERS Safety Report 14942374 (Version 1)
Quarter: 2018Q2

REPORT INFORMATION
  Report Type: Spontaneous
  Country: FR (occurrence: FR)
  Receive Date: 20180528
  Receipt Date: 20180528
  Transmission Date: 20180711
  Serious: Yes (Other)
  Sender: FDA-Public Use
  Company Number: FR-MERCK KGAA-2048511

PATIENT
  Age: 73 Year
  Sex: Female

DRUGS (1)
  1. NOVOTHYROX [Suspect]
     Active Substance: LEVOTHYROXINE SODIUM
     Indication: PRODUCT USED FOR UNKNOWN INDICATION

REACTIONS (23)
  - Dyspnoea [None]
  - Impaired driving ability [None]
  - Hypertriglyceridaemia [None]
  - Blood glucose increased [None]
  - Cystitis [None]
  - Asthenia [None]
  - Loss of personal independence in daily activities [None]
  - Glycosylated haemoglobin increased [None]
  - Tachycardia [None]
  - Psychiatric symptom [None]
  - Decreased interest [None]
  - Social avoidant behaviour [None]
  - Skin texture abnormal [None]
  - White blood cells urine positive [None]
  - Fatigue [None]
  - Blood thyroid stimulating hormone increased [None]
  - Mood altered [None]
  - Visual impairment [None]
  - Blood creatinine increased [None]
  - Depressed mood [None]
  - Monocyte count increased [None]
  - Alopecia [None]
  - Erythema [None]

NARRATIVE: CASE EVENT DATE: 20170209
